FAERS Safety Report 8545926-2 (Version None)
Quarter: 2012Q3

REPORT INFORMATION
  Report Type: 
  Country: None (occurrence: None)
  Receive Date: 20120727
  Receipt Date: 20111122
  Transmission Date: 20120928
  Serious: No
  Sender: FDA-Public Use
  Company Number: US-ASTRAZENECA-2011SE70997

PATIENT
  Age: 42 Year
  Sex: Female
  Weight: 97.5 kg

DRUGS (5)
  1. GEODON [Concomitant]
     Indication: BIPOLAR DISORDER
  2. SEROQUEL [Suspect]
     Indication: SLEEP DISORDER
     Route: 048
     Dates: start: 20080101
  3. XELEXA [Concomitant]
     Indication: DEPRESSION
  4. DEPAKOTE [Concomitant]
     Indication: CONVULSION
  5. DIPHENHYDRAMINE HCL [Concomitant]

REACTIONS (2)
  - OFF LABEL USE [None]
  - DRUG SCREEN POSITIVE [None]
